FAERS Safety Report 24893164 (Version 2)
Quarter: 2025Q1

REPORT INFORMATION
  Report Type: Spontaneous
  Country: US (occurrence: US)
  Receive Date: 20250128
  Receipt Date: 20250326
  Transmission Date: 20250408
  Serious: Yes (Hospitalization, Other)
  Sender: COOPERSURGICAL
  Company Number: US-COOPERSURGICAL, INC.-2025CPS000364

PATIENT
  Age: 39 Year
  Sex: Female
  Weight: 86.168 kg

DRUGS (3)
  1. PARAGARD T 380A [Suspect]
     Active Substance: COPPER
     Indication: Contraception
     Route: 015
     Dates: start: 20080101
  2. TOPAMAX [Concomitant]
     Active Substance: TOPIRAMATE
     Dates: start: 20050101, end: 20160101
  3. MAXALT [Concomitant]
     Active Substance: RIZATRIPTAN BENZOATE
     Dates: start: 20050101, end: 20220101

REACTIONS (21)
  - Hysterectomy [Unknown]
  - Uterine leiomyoma [Unknown]
  - Ovarian cyst ruptured [Unknown]
  - Reproductive complication associated with device [Not Recovered/Not Resolved]
  - Infertility female [Not Recovered/Not Resolved]
  - Endometriosis [Unknown]
  - Oophorectomy bilateral [Recovered/Resolved]
  - Salpingectomy [Recovered/Resolved]
  - Device breakage [Not Recovered/Not Resolved]
  - Foreign body in reproductive tract [Not Recovered/Not Resolved]
  - Complication of device removal [Not Recovered/Not Resolved]
  - Pelvic inflammatory disease [Unknown]
  - Depression [Not Recovered/Not Resolved]
  - Anxiety [Not Recovered/Not Resolved]
  - Procedural pain [Unknown]
  - Panic attack [Recovered/Resolved]
  - Device use issue [Unknown]
  - Off label use [Unknown]
  - Dyspareunia [Not Recovered/Not Resolved]
  - Pelvic pain [Not Recovered/Not Resolved]
  - Pain [Unknown]

NARRATIVE: CASE EVENT DATE: 20160101
